FAERS Safety Report 4309904-1 (Version None)
Quarter: 2004Q1

REPORT INFORMATION
  Report Type: 
  Country: None (occurrence: None)
  Receive Date: 20040303
  Receipt Date: 20040122
  Transmission Date: 20041129
  Serious: No
  Sender: FDA-Public Use
  Company Number: US-BRISTOL-MYERS SQUIBB COMPANY-12485546

PATIENT
  Age: 81 Year
  Sex: Male
  Weight: 63 kg

DRUGS (12)
  1. ABILIFY [Suspect]
     Indication: DEPRESSION
     Route: 048
     Dates: start: 20040121
  2. ABILIFY [Suspect]
     Indication: MOOD SWINGS
     Route: 048
     Dates: start: 20040121
  3. LEVOXYL [Concomitant]
  4. MYSOLINE [Concomitant]
  5. ASPIRIN [Concomitant]
  6. BEXTRA [Concomitant]
  7. RISPERDAL [Concomitant]
  8. PLETAL [Concomitant]
  9. ZONEGRAN [Concomitant]
  10. ALTACE [Concomitant]
  11. CHLOR-TRIMETON [Concomitant]
  12. PEPCID [Concomitant]

REACTIONS (1)
  - PENILE PAIN [None]
